FAERS Safety Report 21522675 (Version 1)
Quarter: 2022Q4

REPORT INFORMATION
  Report Type: Report from Study
  Country: CA (occurrence: CA)
  Receive Date: 20221029
  Receipt Date: 20221029
  Transmission Date: 20230112
  Serious: Yes (Other)
  Sender: FDA-Public Use
  Company Number: CA-ABBVIE-4177254

PATIENT
  Age: 40 Year
  Sex: Female

DRUGS (1)
  1. HUMIRA [Suspect]
     Active Substance: ADALIMUMAB
     Indication: Crohn^s disease
     Dosage: FORM STRENGTH 40 MG
     Route: 058
     Dates: start: 20130606

REACTIONS (3)
  - Oesophageal rupture [Unknown]
  - Crohn^s disease [Unknown]
  - Haematemesis [Unknown]

NARRATIVE: CASE EVENT DATE: 20221021
